FAERS Safety Report 16821885 (Version 4)
Quarter: 2019Q4

REPORT INFORMATION
  Report Type: Spontaneous
  Country: TR (occurrence: TR)
  Receive Date: 20190918
  Receipt Date: 20191010
  Transmission Date: 20200122
  Serious: Yes (Other)
  Sender: FDA-Public Use
  Company Number: TR-PFIZER INC-2019398155

PATIENT
  Age: 73 Year
  Sex: Female

DRUGS (8)
  1. KAPRIL [CAPTOPRIL] [Concomitant]
     Indication: HYPERTENSION
     Dosage: UNK
  2. CORASPIN [Concomitant]
     Active Substance: ASPIRIN
     Dosage: UNK
  3. LERCADIP [LERCANIDIPINE HYDROCHLORIDE] [Concomitant]
     Indication: HYPERTENSION
     Dosage: UNK
  4. DIAFORMIN [Concomitant]
     Active Substance: METFORMIN HYDROCHLORIDE
     Indication: DIABETES MELLITUS
     Dosage: UNK
  5. PANOCER [Concomitant]
     Indication: GASTRIC DILATATION
     Dosage: UNK
  6. BOSUTINIB [Suspect]
     Active Substance: BOSUTINIB
     Indication: CHRONIC MYELOID LEUKAEMIA
     Dosage: 500 MG, 1X/DAY
     Route: 048
     Dates: start: 201903, end: 201906
  7. LUSTRAL [Concomitant]
     Active Substance: SERTRALINE HYDROCHLORIDE
     Indication: ANTIDEPRESSANT THERAPY
     Dosage: UNK
  8. NEXIVOL [Concomitant]
     Active Substance: NEBIVOLOL HYDROCHLORIDE
     Indication: ARRHYTHMIA
     Dosage: UNK

REACTIONS (8)
  - Cholestasis [Recovered/Resolved]
  - Liver function test abnormal [Recovered/Resolved]
  - Pancreatitis [Recovered/Resolved]
  - Weight decreased [Recovered/Resolved]
  - Vomiting [Recovered/Resolved]
  - Pyrexia [Recovered/Resolved]
  - Nausea [Recovered/Resolved]
  - Abdominal pain [Recovered/Resolved]

NARRATIVE: CASE EVENT DATE: 2019
